FAERS Safety Report 7928716-0 (Version None)
Quarter: 2011Q4

REPORT INFORMATION
  Report Type: 
  Country: None (occurrence: None)
  Receive Date: 20111118
  Receipt Date: 20111115
  Transmission Date: 20120403
  Serious: Yes (Other)
  Sender: FDA-Public Use
  Company Number: US-PFIZER INC-2011264354

PATIENT
  Sex: Female
  Weight: 85.261 kg

DRUGS (4)
  1. XALATAN [Suspect]
     Indication: GLAUCOMA
     Dosage: 1 GTT, EACH EYE DAILY
     Route: 047
  2. PERCOCET [Suspect]
     Indication: PAIN
     Dosage: HALF TABLET 2 TIMES A DAY
     Route: 048
     Dates: start: 20110801
  3. HYDROCHLOROTHIAZIDE [Concomitant]
     Indication: HYPERTENSION
     Dosage: 25 MG, DAILY
     Route: 048
  4. LYRICA [Suspect]
     Indication: DIABETIC NEUROPATHY
     Dosage: 50 MG, 3X/DAY
     Route: 048
     Dates: start: 20110901

REACTIONS (1)
  - FEELING ABNORMAL [None]
